FAERS Safety Report 8025913-3 (Version None)
Quarter: 2012Q1

REPORT INFORMATION
  Report Type: 
  Country: None (occurrence: None)
  Receive Date: 20120105
  Receipt Date: 20120102
  Transmission Date: 20120608
  Serious: No
  Sender: FDA-Public Use
  Company Number: SE-ASTRAZENECA-2011SE75421

PATIENT
  Sex: Male

DRUGS (3)
  1. ASPIRIN [Suspect]
     Dosage: IN THE MORNING
  2. ATACAND HCT [Suspect]
     Dosage: 32/12.5 MG, IN THE MORNING
     Route: 048
  3. SIMVASTATIN [Suspect]

REACTIONS (2)
  - FATIGUE [None]
  - DIZZINESS [None]
